FAERS Safety Report 14018700 (Version 2)
Quarter: 2017Q4

REPORT INFORMATION
  Report Type: Spontaneous
  Country: US (occurrence: US)
  Receive Date: 20170928
  Receipt Date: 20171113
  Transmission Date: 20180321
  Serious: No
  Sender: FDA-Public Use
  Company Number: US-PFIZER INC-2017413308

PATIENT
  Age: 78 Year
  Sex: Male

DRUGS (1)
  1. LATANOPROST. [Suspect]
     Active Substance: LATANOPROST
     Dosage: 2 GTT, ONCE DAILY IN EACH EYE)
     Route: 047

REACTIONS (2)
  - Dry eye [Unknown]
  - Eye irritation [Unknown]
